FAERS Safety Report 4620964-0 (Version None)
Quarter: 2005Q1

REPORT INFORMATION
  Report Type: 
  Country: None (occurrence: None)
  Receive Date: 20050315
  Receipt Date: 20050208
  Transmission Date: 20050727
  Serious: No
  Sender: FDA-Public Use
  Company Number: US-YAMANOUCHI-YPA20050068

PATIENT
  Sex: Female

DRUGS (1)
  1. VESICARE [Suspect]
     Dosage: 5 MG DAILY PO
     Route: 048
     Dates: start: 20050101

REACTIONS (2)
  - FEELING ABNORMAL [None]
  - HYPOAESTHESIA [None]
